APPROVED DRUG PRODUCT: ATROPEN
Active Ingredient: ATROPINE
Strength: EQ 0.25MG SULFATE/0.3ML
Dosage Form/Route: SOLUTION;INTRAMUSCULAR
Application: N017106 | Product #004
Applicant: MERIDIAN MEDICAL TECHNOLOGIES LLC
Approved: Sep 17, 2004 | RLD: Yes | RS: No | Type: DISCN